FAERS Safety Report 8583959-0 (Version None)
Quarter: 2012Q3

REPORT INFORMATION
  Report Type: 
  Country: None (occurrence: None)
  Receive Date: 20120810
  Receipt Date: 20120712
  Transmission Date: 20120928
  Serious: No
  Sender: FDA-Public Use
  Company Number: US-009507513-1207USA003504

PATIENT

DRUGS (1)
  1. AZASITE [Suspect]
     Dosage: 2 DF, BID
     Route: 047
     Dates: start: 20120703

REACTIONS (2)
  - NO ADVERSE EVENT [None]
  - INAPPROPRIATE SCHEDULE OF DRUG ADMINISTRATION [None]
